FAERS Safety Report 8282535-7 (Version None)
Quarter: 2012Q2

REPORT INFORMATION
  Report Type: 
  Country: None (occurrence: None)
  Receive Date: 20120413
  Receipt Date: 20120407
  Transmission Date: 20120825
  Serious: Yes (Hospitalization)
  Sender: FDA-Public Use
  Company Number: US-ROCHE-744712

PATIENT
  Sex: Female
  Weight: 58.5 kg

DRUGS (10)
  1. GLIPIZIDE [Concomitant]
  2. XANAX [Concomitant]
  3. COPEGUS [Suspect]
     Indication: HEPATITIS C
     Dosage: 600 MG IN MORNING AND 400 MG IN EVENING
     Route: 048
  4. PEGASYS [Concomitant]
  5. ULTRAM [Concomitant]
  6. FILIBUVIR [Suspect]
     Indication: HEPATITIS C
     Dates: start: 20100723, end: 20101111
  7. BENADRYL [Concomitant]
  8. LISINOPRIL AND HYDROCHLOROTHIAZIDE [Concomitant]
  9. METFORMIN HCL [Concomitant]
  10. PROMETHAZINE [Concomitant]

REACTIONS (1)
  - VERTIGO [None]
